FAERS Safety Report 5969289-1 (Version None)
Quarter: 2008Q4

REPORT INFORMATION
  Report Type: 
  Country: None (occurrence: None)
  Receive Date: 20081126
  Receipt Date: 20081121
  Transmission Date: 20090506
  Serious: Yes (Hospitalization)
  Sender: FDA-Public Use
  Company Number: IN-B.I. PHARMACEUTICALS,INC./RIDGEFIELD-2008-BP-07072BP

PATIENT
  Sex: Male
  Weight: 59 kg

DRUGS (11)
  1. PRAMIPEXOLE DIHYDROCHLORIDE [Suspect]
     Indication: PARKINSON'S DISEASE
     Dosage: 0.375 MG - 4.5 MG
     Dates: start: 20071230, end: 20080430
  2. SYNDOPA [Suspect]
     Indication: PARKINSON'S DISEASE
     Dosage: 220
     Route: 048
     Dates: start: 20071101, end: 20080412
  3. ADCAPONE [Suspect]
     Indication: PARKINSON'S DISEASE
     Dosage: 400
     Route: 048
     Dates: start: 20071101, end: 20080412
  4. PARKIN [Suspect]
     Indication: PARKINSON'S DISEASE
     Dosage: 3
     Route: 048
     Dates: start: 20070125, end: 20080412
  5. AMANTREL [Suspect]
     Indication: PARKINSON'S DISEASE
     Dosage: 300
     Route: 048
     Dates: start: 20071101
  6. SYNDOPA CR [Suspect]
     Indication: PARKINSON'S DISEASE
     Dosage: 150
     Route: 048
     Dates: start: 20071101, end: 20080412
  7. SYNCAPONE (SYNDOPA-ENTACAPONE) [Suspect]
     Indication: PARKINSON'S DISEASE
     Dosage: 250
     Dates: start: 20080412
  8. T-QUITIPIN [Concomitant]
     Indication: ANXIETY
     Dosage: 100MG
     Route: 048
     Dates: start: 20080331
  9. T-QUITIPIN [Concomitant]
     Indication: PSYCHOTIC DISORDER
  10. T-QUITIPIN [Concomitant]
     Indication: DEPRESSION
  11. CLONAZEPAM [Concomitant]
     Indication: ANXIETY
     Dosage: 1MG
     Route: 048
     Dates: start: 20080505

REACTIONS (3)
  - ANXIETY [None]
  - DEPRESSION [None]
  - PSYCHOTIC DISORDER [None]
